FAERS Safety Report 24449323 (Version 1)
Quarter: 2024Q4

REPORT INFORMATION
  Report Type: Spontaneous
  Country: ES (occurrence: ES)
  Receive Date: 20241017
  Receipt Date: 20241017
  Transmission Date: 20250114
  Serious: Yes (Death, Life-Threatening, Hospitalization)
  Sender: RANBAXY
  Company Number: ES-SUN PHARMACEUTICAL INDUSTRIES LTD-2024RR-472990

PATIENT
  Age: 56 Year
  Sex: Male

DRUGS (10)
  1. MORPHINE [Suspect]
     Active Substance: MORPHINE
     Indication: Product used for unknown indication
     Dosage: DOSAGE ADJUSTMENT ACCORDING TO PAIN DURING HOSPITAL ADMISSION
     Route: 040
     Dates: start: 202403, end: 20240411
  2. FENTANYL [Suspect]
     Active Substance: FENTANYL
     Indication: Product used for unknown indication
     Dosage: 1/72 H
     Route: 062
     Dates: start: 20240216, end: 20240320
  3. MORPHINE [Suspect]
     Active Substance: MORPHINE
     Indication: Product used for unknown indication
     Dosage: 1/4 H
     Route: 048
     Dates: start: 20240306, end: 20240320
  4. TRAZODONE HYDROCHLORIDE [Suspect]
     Active Substance: TRAZODONE HYDROCHLORIDE
     Indication: Product used for unknown indication
     Dosage: 1/24 H
     Route: 048
     Dates: start: 20230404, end: 20240411
  5. LOSARTAN POTASSIUM [Concomitant]
     Active Substance: LOSARTAN POTASSIUM
     Indication: Product used for unknown indication
     Dosage: 1/24 H
     Route: 048
     Dates: start: 20230315, end: 20240411
  6. CERTICAN [Concomitant]
     Active Substance: EVEROLIMUS
     Indication: Product used for unknown indication
     Dosage: 2/12 H
     Route: 048
     Dates: start: 20230322, end: 20240411
  7. ESOMEPRAZOLE CINFA [Concomitant]
     Indication: Product used for unknown indication
     Dosage: 1/24 H
     Route: 048
     Dates: start: 20240119, end: 20240411
  8. ENVARSUS XR [Concomitant]
     Active Substance: TACROLIMUS
     Indication: Product used for unknown indication
     Dosage: 3/24 H
     Route: 048
     Dates: start: 20230322, end: 20240411
  9. ASPIRIN CINFAMED [Concomitant]
     Indication: Product used for unknown indication
     Dosage: 1/24 H
     Route: 048
     Dates: start: 20230315, end: 20240411
  10. CITALOPRAM MABO [Concomitant]
     Indication: Product used for unknown indication
     Dosage: 1/24 H
     Route: 048
     Dates: start: 20230619, end: 20240411

REACTIONS (2)
  - Hepatic encephalopathy [Fatal]
  - Constipation [Fatal]
